FAERS Safety Report 7246256-1 (Version None)
Quarter: 2011Q1

REPORT INFORMATION
  Report Type: 
  Country: None (occurrence: None)
  Receive Date: 20110126
  Receipt Date: 20110120
  Transmission Date: 20110831
  Serious: Yes (Other)
  Sender: FDA-Public Use
  Company Number: DE-ELI_LILLY_AND_COMPANY-DE201101005097

PATIENT
  Sex: Male

DRUGS (2)
  1. VICTOZA [Concomitant]
  2. BYETTA [Suspect]
     Dosage: 10 UG, UNKNOWN
     Route: 058

REACTIONS (3)
  - INFLAMMATION [None]
  - LEUKAEMIA RECURRENT [None]
  - OSTEITIS [None]
